FAERS Safety Report 10223174 (Version 2)
Quarter: 2014Q3

REPORT INFORMATION
  Report Type: Spontaneous
  Country: US (occurrence: US)
  Receive Date: 20140608
  Receipt Date: 20140722
  Transmission Date: 20150326
  Serious: No
  Sender: FDA-Public Use
  Company Number: US-ASTRAZENECA-2014SE36819

PATIENT
  Age: 84 Year
  Sex: Male

DRUGS (3)
  1. SYMBICORT [Suspect]
     Active Substance: BUDESONIDE\FORMOTEROL FUMARATE DIHYDRATE
     Indication: CHRONIC OBSTRUCTIVE PULMONARY DISEASE
     Dosage: SYMBICORT 80/4.5 ONCE OR TWICE AS HE NEEDED IT EITHER EVERY DAY OR EVERY OTHER DAY
     Route: 055
     Dates: start: 2013
  2. SYMBICORT [Suspect]
     Active Substance: BUDESONIDE\FORMOTEROL FUMARATE DIHYDRATE
     Indication: CHRONIC OBSTRUCTIVE PULMONARY DISEASE
     Dosage: SYMBICORT 80/4.5 ONCE OR TWICE AS HE NEEDED IT EITHER EVERY DAY OR EVERY OTHER DAY
     Route: 055
     Dates: start: 2013
  3. ALBUTEROL. [Concomitant]
     Active Substance: ALBUTEROL
     Indication: CHRONIC OBSTRUCTIVE PULMONARY DISEASE
     Dosage: UNKNOWN PRN
     Route: 055
     Dates: start: 2013

REACTIONS (2)
  - Intentional product misuse [Unknown]
  - Burning sensation [Unknown]

NARRATIVE: CASE EVENT DATE: 2013
